FAERS Safety Report 25659808 (Version 1)
Quarter: 2025Q3

REPORT INFORMATION
  Report Type: Spontaneous
  Country: US (occurrence: US)
  Receive Date: 20250808
  Receipt Date: 20250808
  Transmission Date: 20251021
  Serious: No
  Sender: CSL BEHRING
  Company Number: US-BEH-2025214596

PATIENT
  Sex: Male

DRUGS (33)
  1. HIZENTRA [Suspect]
     Active Substance: HUMAN IMMUNOGLOBULIN G
     Indication: Immunodeficiency common variable
     Dosage: 4 GM/20ML: TRANSFER 75 ML INTO TWO 50 ML SYRINGES. INFUSE 75 ML (15 GM), QW
     Route: 058
     Dates: start: 20250307
  2. HIZENTRA [Suspect]
     Active Substance: HUMAN IMMUNOGLOBULIN G
     Indication: Immunodeficiency common variable
     Dosage: 4 GM/20ML: TRANSFER 75 ML INTO TWO 50 ML SYRINGES. INFUSE 75 ML (15 GM), QW
     Route: 058
     Dates: start: 20250307
  3. HIZENTRA [Suspect]
     Active Substance: HUMAN IMMUNOGLOBULIN G
     Route: 058
  4. HIZENTRA [Suspect]
     Active Substance: HUMAN IMMUNOGLOBULIN G
     Route: 058
  5. HIZENTRA [Suspect]
     Active Substance: HUMAN IMMUNOGLOBULIN G
     Route: 058
  6. HIZENTRA [Suspect]
     Active Substance: HUMAN IMMUNOGLOBULIN G
     Route: 058
  7. ALBUTEROL [Concomitant]
     Active Substance: ALBUTEROL
  8. ASPIRIN [Concomitant]
     Active Substance: ASPIRIN
  9. BACLOFEN [Concomitant]
     Active Substance: BACLOFEN
  10. CRESTOR [Concomitant]
     Active Substance: ROSUVASTATIN CALCIUM
  11. CUVITRU [Concomitant]
     Active Substance: HUMAN IMMUNOGLOBULIN G
  12. CYMBALTA [Concomitant]
     Active Substance: DULOXETINE HYDROCHLORIDE
  13. DULOXETINE [Concomitant]
     Active Substance: DULOXETINE
  14. FENOFIBRATE [Concomitant]
     Active Substance: FENOFIBRATE
  15. GABAPENTIN [Concomitant]
     Active Substance: GABAPENTIN
  16. Isosorb [Concomitant]
  17. JARDIANCE [Concomitant]
     Active Substance: EMPAGLIFLOZIN
  18. LOSARTAN [Concomitant]
     Active Substance: LOSARTAN
  19. METFORMIN [Concomitant]
     Active Substance: METFORMIN HYDROCHLORIDE
  20. METOPROLOL SUCCINATE [Concomitant]
     Active Substance: METOPROLOL SUCCINATE
  21. METOPROLOL TARTRATE [Concomitant]
     Active Substance: METOPROLOL TARTRATE
  22. VITAMINS [Concomitant]
     Active Substance: VITAMINS
  23. NITROSTAT [Concomitant]
     Active Substance: NITROGLYCERIN
  24. OMEGA 3 [Concomitant]
     Active Substance: CAPSAICIN
  25. OMEPRAZOLE [Concomitant]
     Active Substance: OMEPRAZOLE
  26. PROBIOTICS NOS [Concomitant]
     Active Substance: PROBIOTICS NOS
  27. ROSUVASTATIN [Concomitant]
     Active Substance: ROSUVASTATIN
  28. SYMBICORT [Concomitant]
     Active Substance: BUDESONIDE\FORMOTEROL FUMARATE DIHYDRATE
  29. TRICOR [Concomitant]
     Active Substance: FENOFIBRATE
  30. HERBALS\TURMERIC [Concomitant]
     Active Substance: HERBALS\TURMERIC
  31. VERAPAMIL [Concomitant]
     Active Substance: VERAPAMIL HYDROCHLORIDE
  32. VOLTAREN [Concomitant]
     Active Substance: DICLOFENAC SODIUM
  33. ZINC [Concomitant]
     Active Substance: ZINC

REACTIONS (1)
  - Cellulitis [Recovered/Resolved]
